FAERS Safety Report 8234691-4 (Version None)
Quarter: 2012Q1

REPORT INFORMATION
  Report Type: 
  Country: None (occurrence: None)
  Receive Date: 20120326
  Receipt Date: 20120321
  Transmission Date: 20120608
  Serious: Yes (Hospitalization)
  Sender: FDA-Public Use
  Company Number: AU-PFIZER INC-2012072780

PATIENT
  Sex: Female

DRUGS (2)
  1. CABERGOLINE [Suspect]
     Dosage: UNK
     Dates: start: 20110101
  2. OXYCONTIN [Concomitant]
     Dosage: UNK

REACTIONS (2)
  - CHEST PAIN [None]
  - ALOPECIA [None]
